FAERS Safety Report 13716861 (Version 1)
Quarter: 2017Q3

REPORT INFORMATION
  Report Type: Spontaneous
  Country: US (occurrence: US)
  Receive Date: 20170703
  Receipt Date: 20170703
  Transmission Date: 20171127
  Serious: Yes (Other)
  Sender: FDA-Public Use
  Company Number: None

PATIENT
  Age: 60 Year
  Sex: Male
  Weight: 63.9 kg

DRUGS (1)
  1. MONTELUKAST 10 MG [Suspect]
     Active Substance: MONTELUKAST SODIUM
     Indication: VERTIGO
     Dosage: ?          OTHER STRENGTH:MG;QUANTITY:30 TABLET(S);?
     Route: 048

REACTIONS (5)
  - Oropharyngeal pain [None]
  - Choking [None]
  - Cough [None]
  - Dyspnoea [None]
  - Foreign body in respiratory tract [None]

NARRATIVE: CASE EVENT DATE: 20170501
